FAERS Safety Report 16750983 (Version 1)
Quarter: 2019Q3

REPORT INFORMATION
  Report Type: Spontaneous
  Country: MX (occurrence: MX)
  Receive Date: 20190710
  Receipt Date: 20190710
  Transmission Date: 20191005
  Serious: Yes (Other)
  Sender: FDA-Public Use
  Company Number: None

PATIENT
  Age: 4 Year
  Sex: Male
  Weight: 20 kg

DRUGS (5)
  1. RANITIDINE. [Concomitant]
     Active Substance: RANITIDINE
  2. CETIRIZINE [Concomitant]
     Active Substance: CETIRIZINE HYDROCHLORIDE
  3. MONTELUKAST [Concomitant]
     Active Substance: MONTELUKAST SODIUM
  4. PREDNISOLONE. [Concomitant]
     Active Substance: PREDNISOLONE
  5. PRONTOBARIO HD (MEDICAL DEVICE) [Suspect]
     Active Substance: BARIUM SULFATE

REACTIONS (4)
  - Rash macular [None]
  - Lip swelling [None]
  - Rash pruritic [None]
  - Mouth swelling [None]

NARRATIVE: CASE EVENT DATE: 20190708
